FAERS Safety Report 16017488 (Version 1)
Quarter: 2019Q1

REPORT INFORMATION
  Report Type: Spontaneous
  Country: US (occurrence: US)
  Receive Date: 20190201
  Receipt Date: 20190201
  Transmission Date: 20190418
  Serious: Yes (Hospitalization)
  Sender: FDA-Public Use
  Company Number: None

PATIENT
  Age: 73 Year
  Sex: Female
  Weight: 80.2 kg

DRUGS (1)
  1. AVELUMAB 200ML [Suspect]
     Active Substance: AVELUMAB
     Indication: GLIOBLASTOMA
     Dates: start: 20181106, end: 20181123

REACTIONS (5)
  - Somnolence [None]
  - Unevaluable event [None]
  - Fall [None]
  - Social avoidant behaviour [None]
  - Personality change [None]

NARRATIVE: CASE EVENT DATE: 20190130
